FAERS Safety Report 18575693 (Version 1)
Quarter: 2020Q4

REPORT INFORMATION
  Report Type: Spontaneous
  Country: US (occurrence: US)
  Receive Date: 20201203
  Receipt Date: 20201203
  Transmission Date: 20210114
  Serious: No
  Sender: FDA-Public Use
  Company Number: US-PFIZER INC-2020465447

PATIENT
  Age: 80 Year
  Sex: Female
  Weight: 59.87 kg

DRUGS (2)
  1. XELJANZ XR [Suspect]
     Active Substance: TOFACITINIB CITRATE
     Dosage: 11 MG, 2X/DAY (TOOK XELJANZ 2X TODAY IN ERROR)
     Dates: start: 20201124
  2. XELJANZ XR [Suspect]
     Active Substance: TOFACITINIB CITRATE
     Indication: RHEUMATOID ARTHRITIS
     Dosage: 11 MG, DAILY (11MG, 1 TABLET BY MOUTH ONCE DAILY)
     Route: 048
     Dates: start: 2020

REACTIONS (2)
  - Headache [Unknown]
  - Wrong dose [Unknown]

NARRATIVE: CASE EVENT DATE: 20201124
